FAERS Safety Report 5327138-9 (Version None)
Quarter: 2007Q2

REPORT INFORMATION
  Report Type: 
  Country: None (occurrence: None)
  Receive Date: 20070517
  Receipt Date: 20070508
  Transmission Date: 20071010
  Serious: Yes (Hospitalization)
  Sender: FDA-Public Use
  Company Number: US-BAYER-200711449BWH

PATIENT
  Age: 39 Year
  Sex: Female
  Weight: 55 kg

DRUGS (3)
  1. AVELOX [Suspect]
     Indication: SINUSITIS
     Route: 048
     Dates: start: 20070403
  2. GONAL-F [Suspect]
     Indication: INFERTILITY
     Route: 058
     Dates: start: 20070305, end: 20070316
  3. CRINONE [Concomitant]
     Indication: LUTEAL PHASE DEFICIENCY
     Route: 067
     Dates: start: 20070320, end: 20070405

REACTIONS (9)
  - ABDOMINAL PAIN [None]
  - CHILLS [None]
  - DECREASED APPETITE [None]
  - HEPATOTOXICITY [None]
  - HYPERHIDROSIS [None]
  - LIVER FUNCTION TEST ABNORMAL [None]
  - LIVER TENDERNESS [None]
  - NAUSEA [None]
  - PYREXIA [None]
